FAERS Safety Report 20781974 (Version 1)
Quarter: 2022Q2

REPORT INFORMATION
  Report Type: Spontaneous
  Country: DE (occurrence: None)
  Receive Date: 20220504
  Receipt Date: 20220504
  Transmission Date: 20220721
  Serious: Yes (Other)
  Sender: FDA-Public Use
  Company Number: DE-ROCHE-3083053

PATIENT
  Sex: Female
  Weight: 51 kg

DRUGS (5)
  1. MABTHERA [Suspect]
     Active Substance: RITUXIMAB
     Indication: Diffuse large B-cell lymphoma
     Dosage: FIRST LINE WITH CHOP21, 5 CYLCES + 1 CYCLE MABTHERA SOLO
     Route: 065
     Dates: start: 201801, end: 201805
  2. CYCLOPHOSPHAMIDE\DOXORUBICIN\PREDNISONE\VINCRISTINE [Suspect]
     Active Substance: CYCLOPHOSPHAMIDE\DOXORUBICIN\PREDNISONE\VINCRISTINE
     Indication: Diffuse large B-cell lymphoma
     Route: 065
     Dates: start: 201801, end: 201805
  3. PIXANTRONE [Suspect]
     Active Substance: PIXANTRONE
     Indication: Diffuse large B-cell lymphoma
     Dosage: SESOND LINE, 4 CYCLES
     Route: 065
     Dates: start: 201901, end: 201904
  4. GEMCITABINE [Suspect]
     Active Substance: GEMCITABINE
     Indication: Diffuse large B-cell lymphoma
     Dosage: THIRD LIN, 4 CYCLES
     Route: 065
     Dates: start: 201905, end: 201909
  5. DEXAMETHASONE [Suspect]
     Active Substance: DEXAMETHASONE
     Indication: Diffuse large B-cell lymphoma
     Dosage: THIRD LIN, 4 CYCLES
     Route: 065
     Dates: start: 201905, end: 201909

REACTIONS (6)
  - General physical health deterioration [Unknown]
  - Night sweats [Not Recovered/Not Resolved]
  - Pyrexia [Unknown]
  - Nausea [Unknown]
  - Abdominal pain [Unknown]
  - Haematotoxicity [Unknown]
